FAERS Safety Report 4692061-X (Version None)
Quarter: 2005Q2

REPORT INFORMATION
  Report Type: 
  Country: None (occurrence: None)
  Receive Date: 20050616
  Receipt Date: 20050616
  Transmission Date: 20051028
  Serious: Yes (Hospitalization)
  Sender: FDA-Public Use
  Company Number: None

PATIENT
  Age: 52 Year
  Sex: Female
  Weight: 60.3284 kg

DRUGS (11)
  1. CISPLATIN [Suspect]
     Indication: CERVIX CARCINOMA
     Dosage: WKLY IV INTRAVENOU
     Route: 042
     Dates: start: 20050509, end: 20050530
  2. TOPOTECAN 2 MG/M2 GSK [Suspect]
     Indication: CERVIX CARCINOMA
     Dosage: WKLY IV INTRAVENOU
     Route: 042
     Dates: start: 20050509, end: 20050530
  3. METHADONE HCL [Concomitant]
  4. MORPHINE SULFATE [Concomitant]
  5. PEPCID [Concomitant]
  6. PHENERGAN [Concomitant]
  7. PROMETHAZINE HCL [Concomitant]
  8. REGLAN [Concomitant]
  9. METOCLOPRAMIDE HCL [Concomitant]
  10. ZOFRAN [Concomitant]
  11. ONDANSETRON [Concomitant]

REACTIONS (3)
  - ABDOMINAL PAIN [None]
  - HYPOKALAEMIA [None]
  - PAIN [None]
